FAERS Safety Report 11381474 (Version 1)
Quarter: 2015Q3

REPORT INFORMATION
  Report Type: Spontaneous
  Country: CH (occurrence: CH)
  Receive Date: 20150814
  Receipt Date: 20150814
  Transmission Date: 20151125
  Serious: Yes (Other)
  Sender: FDA-Public Use
  Company Number: CH-TEVA-570004ISR

PATIENT
  Age: 74 Year
  Sex: Female

DRUGS (1)
  1. CLARITHROCIN-MEPHA 500 LACTAB [Suspect]
     Active Substance: CLARITHROMYCIN
     Dosage: FROM 02-JUN-2015, THE PATIENT WAS PRESCRIBED CO-AMOXI
     Route: 065
     Dates: start: 20150529, end: 2015

REACTIONS (4)
  - Drug ineffective [Unknown]
  - Dysgeusia [Unknown]
  - C-reactive protein increased [Unknown]
  - Tongue discolouration [Unknown]

NARRATIVE: CASE EVENT DATE: 2015
